FAERS Safety Report 10901807 (Version 2)
Quarter: 2015Q2

REPORT INFORMATION
  Report Type: Spontaneous
  Country: US (occurrence: US)
  Receive Date: 20150310
  Receipt Date: 20150505
  Transmission Date: 20150821
  Serious: Yes (Other)
  Sender: FDA-Public Use
  Company Number: US-BAYER-2015-034895

PATIENT
  Age: 19 Year
  Sex: Female
  Weight: 73.16 kg

DRUGS (3)
  1. LO LOESTRIN FE [Concomitant]
     Active Substance: ETHINYL ESTRADIOL\NORETHINDRONE ACETATE
  2. CIPRO [Concomitant]
     Active Substance: CIPROFLOXACIN HYDROCHLORIDE
  3. MIRENA [Suspect]
     Active Substance: LEVONORGESTREL
     Indication: CONTRACEPTION
     Dosage: 20 MCG/24HR, CONT
     Route: 015
     Dates: start: 20100622, end: 20130305

REACTIONS (6)
  - Abdominal pain [None]
  - Emotional distress [None]
  - Embedded device [None]
  - Complication of device removal [None]
  - Injury [None]
  - Device breakage [None]

NARRATIVE: CASE EVENT DATE: 2011
